FAERS Safety Report 8371467-1 (Version None)
Quarter: 2012Q2

REPORT INFORMATION
  Report Type: 
  Country: None (occurrence: None)
  Receive Date: 20120518
  Receipt Date: 20120511
  Transmission Date: 20120825
  Serious: Yes (Hospitalization)
  Sender: FDA-Public Use
  Company Number: US-MPIJNJ-2011-01375

PATIENT
  Sex: Female
  Weight: 56.689 kg

DRUGS (4)
  1. VELCADE [Suspect]
     Indication: MULTIPLE MYELOMA
     Dosage: 1.3 MG/M2, CYCLIC
     Route: 042
     Dates: start: 20100518, end: 20100723
  2. ROCEPHIN [Concomitant]
     Indication: PRODUCT USED FOR UNKNOWN INDICATION
     Route: 042
  3. BACTRIM [Concomitant]
     Indication: CLOSTRIDIUM DIFFICILE COLITIS
     Dosage: UNK
  4. FLAGYL [Concomitant]
     Indication: CLOSTRIDIUM DIFFICILE COLITIS
     Dosage: UNK

REACTIONS (5)
  - CLOSTRIDIUM DIFFICILE COLITIS [None]
  - DEVICE RELATED INFECTION [None]
  - FEBRILE NEUTROPENIA [None]
  - SERRATIA SEPSIS [None]
  - ESCHERICHIA SEPSIS [None]
